FAERS Safety Report 21332023 (Version 1)
Quarter: 2022Q3

REPORT INFORMATION
  Report Type: Spontaneous
  Country: None (occurrence: US)
  Receive Date: 20220914
  Receipt Date: 20220914
  Transmission Date: 20221027
  Serious: No
  Sender: FDA-Public Use
  Company Number: US-Vero Biotech-2132837

PATIENT
  Age: 75 Year
  Sex: Female

DRUGS (2)
  1. GENOSYL [Suspect]
     Active Substance: NITRIC OXIDE
     Route: 055
  2. GENOSYL [Suspect]
     Active Substance: NITRIC OXIDE

REACTIONS (4)
  - Pulmonary arterial pressure increased [Unknown]
  - Underdose [None]
  - Device delivery system issue [None]
  - No adverse event [None]

NARRATIVE: CASE EVENT DATE: 20220814
